FAERS Safety Report 6386623-1 (Version None)
Quarter: 2009Q4

REPORT INFORMATION
  Report Type: 
  Country: None (occurrence: None)
  Receive Date: 20091002
  Receipt Date: 20090922
  Transmission Date: 20100525
  Serious: Yes (Other)
  Sender: FDA-Public Use
  Company Number: US-ELI_LILLY_AND_COMPANY-US200909005385

PATIENT
  Sex: Female

DRUGS (14)
  1. FORTEO [Suspect]
     Indication: OSTEOPOROSIS
     Dosage: 20 UG, DAILY (1/D)
     Dates: start: 20090301
  2. FORTEO [Suspect]
     Dosage: 20 UG, DAILY (1/D)
     Dates: start: 20090301
  3. FORTEO [Suspect]
     Dosage: 20 UG, DAILY (1/D)
     Dates: start: 20090301
  4. COUMADIN [Concomitant]
  5. FUROSEMIDE [Concomitant]
  6. LABETALOL HCL [Concomitant]
  7. CRESTOR [Concomitant]
  8. PRILOSEC [Concomitant]
     Dosage: UNK, AS NEEDED
  9. SPIRONOLACTONE [Concomitant]
  10. VALTREX [Concomitant]
  11. CHONDROITIN W/GLUCOSAMINE [Concomitant]
  12. VITAMIN D [Concomitant]
  13. ASCORBIC ACID [Concomitant]
  14. CITRACAL [Concomitant]

REACTIONS (3)
  - LUNG NEOPLASM [None]
  - MALAISE [None]
  - VISUAL IMPAIRMENT [None]
